FAERS Safety Report 5285675-X (Version None)
Quarter: 2007Q1

REPORT INFORMATION
  Report Type: 
  Country: None (occurrence: None)
  Receive Date: 20070126
  Receipt Date: 20061205
  Transmission Date: 20070707
  Serious: Yes (Other)
  Sender: FDA-Public Use
  Company Number: CLOF-10406

PATIENT
  Age: 65 Year
  Sex: Female

DRUGS (3)
  1. CLOFARABINE [Suspect]
     Indication: ACUTE MYELOID LEUKAEMIA RECURRENT
     Dosage: 69.2 MG QD IV
     Route: 042
     Dates: start: 20061202, end: 20061203
  2. CLOFARABINE [Suspect]
     Indication: ACUTE MYELOID LEUKAEMIA RECURRENT
     Dosage: 69.2 MG QD IV
     Route: 042
     Dates: start: 20061205
  3. CYTARABINE [Suspect]
     Indication: ACUTE MYELOID LEUKAEMIA RECURRENT
     Dosage: 1000 MG/M2 QD IV
     Route: 042
     Dates: start: 20061202

REACTIONS (2)
  - HYPOTENSION [None]
  - NEUROTOXICITY [None]
